FAERS Safety Report 13030538 (Version 1)
Quarter: 2016Q4

REPORT INFORMATION
  Report Type: Spontaneous
  Country: US (occurrence: US)
  Receive Date: 20161215
  Receipt Date: 20161215
  Transmission Date: 20170207
  Serious: Yes (Disabling)
  Sender: FDA-Public Use
  Company Number: None

PATIENT
  Sex: Female
  Weight: 82.56 kg

DRUGS (4)
  1. GLUCOSAMINE CHONDROITIN [Concomitant]
     Active Substance: CHONDROITIN SULFATE (BOVINE)\GLUCOSAMINE HYDROCHLORIDE
  2. MELATONIN [Concomitant]
     Active Substance: MELATONIN
  3. HYDROCODONE [Suspect]
     Active Substance: HYDROCODONE
     Indication: DRUG THERAPY
  4. GINKGO BIOLBA [Concomitant]

REACTIONS (2)
  - Insomnia [None]
  - Weight decreased [None]

NARRATIVE: CASE EVENT DATE: 2016
